FAERS Safety Report 5382290-4 (Version None)
Quarter: 2007Q3

REPORT INFORMATION
  Report Type: 
  Country: None (occurrence: None)
  Receive Date: 20070705
  Receipt Date: 20070620
  Transmission Date: 20080115
  Serious: Yes (Hospitalization)
  Sender: FDA-Public Use
  Company Number: CIP07001227

PATIENT
  Age: 83 Year
  Sex: Female

DRUGS (1)
  1. RISEDRONATE SODIUM [Suspect]
     Dosage: UNK, UNK, ORAL
     Route: 048
     Dates: start: 20050101

REACTIONS (4)
  - ANAEMIA MACROCYTIC [None]
  - APLASIA PURE RED CELL [None]
  - ENTEROCOLITIS BACTERIAL [None]
  - LYMPHOCYTE STIMULATION TEST POSITIVE [None]
